FAERS Safety Report 6129430-7 (Version None)
Quarter: 2009Q1

REPORT INFORMATION
  Report Type: 
  Country: None (occurrence: None)
  Receive Date: 20090323
  Receipt Date: 20090323
  Transmission Date: 20090719
  Serious: No
  Sender: FDA-Public Use
  Company Number: None

PATIENT
  Age: 30 Year
  Sex: Female
  Weight: 74 kg

DRUGS (1)
  1. CLEOCIN [Suspect]
     Indication: BETA HAEMOLYTIC STREPTOCOCCAL INFECTION
     Dosage: 900MG Q8 HOURS IV HOURS
     Route: 042
     Dates: start: 20090313, end: 20090313

REACTIONS (3)
  - DIZZINESS [None]
  - DYSGEUSIA [None]
  - INFUSION RELATED REACTION [None]
